FAERS Safety Report 6693157-3 (Version None)
Quarter: 2010Q2

REPORT INFORMATION
  Report Type: 
  Country: None (occurrence: None)
  Receive Date: 20100421
  Receipt Date: 20100421
  Transmission Date: 20101027
  Serious: Yes (Other)
  Sender: FDA-Public Use
  Company Number: None

PATIENT
  Age: 41 Year
  Sex: Female

DRUGS (2)
  1. REMICADE [Suspect]
     Indication: ANKYLOSING SPONDYLITIS
     Dosage: 600MG IV EVERY 8 WEEKS IV
     Route: 042
     Dates: start: 20100211, end: 20100415
  2. REMICADE [Suspect]
     Indication: RHEUMATOID ARTHRITIS
     Dosage: 600MG IV EVERY 8 WEEKS IV
     Route: 042
     Dates: start: 20100211, end: 20100415

REACTIONS (3)
  - INFUSION RELATED REACTION [None]
  - MOVEMENT DISORDER [None]
  - PAIN [None]
